FAERS Safety Report 20013684 (Version 1)
Quarter: 2021Q4

REPORT INFORMATION
  Report Type: Spontaneous
  Country: US (occurrence: US)
  Receive Date: 20211029
  Receipt Date: 20211029
  Transmission Date: 20220303
  Serious: No
  Sender: FDA-Public Use
  Company Number: US-GLAXOSMITHKLINE-US2021223624

PATIENT
  Age: 52 Year
  Sex: Female

DRUGS (7)
  1. BREO ELLIPTA [Suspect]
     Active Substance: FLUTICASONE FUROATE\VILANTEROL TRIFENATATE
     Indication: Chronic obstructive pulmonary disease
     Dosage: 1 PUFF(S), QD, 100-25MCG USE ONE INHALATION BY MOUTH EVERY DAY
     Route: 048
     Dates: start: 20200709, end: 202106
  2. FLONASE [Suspect]
     Active Substance: FLUTICASONE PROPIONATE
     Indication: Hypersensitivity
     Dosage: 2 PUFF(S), QD, 50MCG PER SPRAY 2 PUFFS ONCE A DAY
  3. TRIAMTERENE AND HYDROCHLOROTHIAZIDE [Suspect]
     Active Substance: HYDROCHLOROTHIAZIDE\TRIAMTERENE
     Indication: Hypertension
     Dosage: 1 DF, QD,37.5MG/ HCTZ 25MG
  4. SINGULAIR [Suspect]
     Active Substance: MONTELUKAST SODIUM
     Indication: Hypersensitivity
     Dosage: 10 MG, QD
  5. GABAPENTIN [Suspect]
     Active Substance: GABAPENTIN
     Indication: Neuropathy peripheral
     Dosage: 400 MG, QD,  IN MORNING
     Dates: start: 2017
  6. METFORMIN [Suspect]
     Active Substance: METFORMIN HYDROCHLORIDE
     Indication: Diabetes mellitus
     Dosage: 2 DF, BID, 500MG 2 TABS BY MOUTH
     Route: 048
     Dates: end: 202102
  7. CRESTOR [Suspect]
     Active Substance: ROSUVASTATIN CALCIUM
     Indication: Blood cholesterol
     Dosage: 1 DF, QD, 10MG 1 TABLET EVERY NIGHT

REACTIONS (5)
  - Epistaxis [Not Recovered/Not Resolved]
  - Wheezing [Recovering/Resolving]
  - Nasal polyps [Not Recovered/Not Resolved]
  - Nasal discomfort [Unknown]
  - Drug ineffective [Unknown]

NARRATIVE: CASE EVENT DATE: 20100101
